FAERS Safety Report 9096028 (Version 1)
Quarter: 2013Q1

REPORT INFORMATION
  Report Type: Spontaneous
  Country: TW (occurrence: TW)
  Receive Date: 20130207
  Receipt Date: 20130207
  Transmission Date: 20140127
  Serious: Yes (Hospitalization, Other)
  Sender: FDA-Public Use
  Company Number: TW-PFIZER INC-2013047110

PATIENT
  Age: 58 Year
  Sex: Male

DRUGS (3)
  1. FLUOROURACIL [Suspect]
     Indication: COLON CANCER METASTATIC
     Dosage: (2400 MG/M2) FOR 46 HOURS EVERY TWO WEEKS
  2. IRINOTECAN HYDROCHLORIDE [Concomitant]
     Indication: COLON CANCER METASTATIC
     Dosage: (180 MG/M2) FOR 90 MINUTES EVERY TWO WEEKS
  3. BEVACIZUMAB [Concomitant]
     Indication: COLON CANCER METASTATIC
     Dosage: 5 MG/KG) FOR 90 MINUTES EVERY TWO WEEKS

REACTIONS (6)
  - Hyperammonaemic encephalopathy [Recovered/Resolved]
  - Renal failure acute [Recovered/Resolved]
  - Lethargy [Unknown]
  - Dysarthria [Unknown]
  - Nausea [Unknown]
  - Vomiting [Unknown]
